FAERS Safety Report 24080751 (Version 1)
Quarter: 2024Q3

REPORT INFORMATION
  Report Type: Spontaneous
  Country: JP (occurrence: JP)
  Receive Date: 20240711
  Receipt Date: 20240711
  Transmission Date: 20241016
  Serious: Yes (Death, Hospitalization, Other)
  Sender: EMD SERONO INC
  Company Number: JP-Merck Healthcare KGaA-2024037651

PATIENT
  Age: 78 Year
  Sex: Female
  Weight: 64 kg

DRUGS (13)
  1. BAVENCIO [Suspect]
     Active Substance: AVELUMAB
     Indication: Ureteral neoplasm
     Route: 041
  2. PADCEV [Suspect]
     Active Substance: ENFORTUMAB VEDOTIN-EJFV
     Indication: Ureteral neoplasm
     Route: 041
     Dates: start: 20240403, end: 20240417
  3. MAGNESIUM OXIDE [Concomitant]
     Active Substance: MAGNESIUM OXIDE
     Indication: Product used for unknown indication
     Route: 048
     Dates: start: 20230919
  4. SENNOSIDES A AND B [Concomitant]
     Active Substance: SENNOSIDES A AND B
     Indication: Product used for unknown indication
     Route: 048
     Dates: start: 20231222
  5. FLUCONAZOLE [Concomitant]
     Active Substance: FLUCONAZOLE
     Indication: Oral candidiasis
     Route: 050
     Dates: start: 20240424
  6. HACHIAZULE [SODIUM GUALENATE] [Concomitant]
     Indication: Product used for unknown indication
     Dosage: UNK UNK, UNKNOWN FREQ.
     Route: 050
     Dates: start: 20240426
  7. XYLOCAINE [Concomitant]
     Active Substance: LIDOCAINE HYDROCHLORIDE\LIDOCAINE HYDROCHLORIDE ANHYDROUS
     Indication: Product used for unknown indication
     Route: 050
     Dates: start: 20240426
  8. LOCOID [Concomitant]
     Active Substance: HYDROCORTISONE BUTYRATE
     Indication: Product used for unknown indication
     Dosage: PHARMACEUTICAL FORM (DOSAGE FORM): OINTMENT.
     Route: 050
     Dates: start: 20240426
  9. FEXOFENADINE HYDROCHLORIDE [Concomitant]
     Active Substance: FEXOFENADINE HYDROCHLORIDE
     Indication: Rash
     Dosage: UNK UNK, UNKNOWN FREQ.
     Route: 050
     Dates: start: 20240417
  10. PIPERACILLIN SODIUM\TAZOBACTAM SODIUM [Concomitant]
     Active Substance: PIPERACILLIN SODIUM\TAZOBACTAM SODIUM
     Indication: Febrile neutropenia
     Dosage: UNK UNK, UNKNOWN FREQ.
     Route: 050
     Dates: start: 20240424
  11. FILGRASTIM [Concomitant]
     Active Substance: FILGRASTIM
     Indication: Febrile neutropenia
     Route: 050
     Dates: start: 20240424
  12. CLOBETASOL [Concomitant]
     Active Substance: CLOBETASOL
     Indication: Rash
     Dosage: PHARMACEUTICAL FORM (DOSAGE FORM): OINTMENT
     Route: 050
     Dates: start: 20240425
  13. MYSER [DIFLUPREDNATE] [Concomitant]
     Indication: Rash
     Dosage: PHARMACEUTICAL FORM (DOSAGE FORM): OINTMENT
     Route: 050
     Dates: start: 20240417

REACTIONS (4)
  - Febrile neutropenia [Fatal]
  - Platelet count decreased [Fatal]
  - Blister [Fatal]
  - Rash erythematous [Fatal]

NARRATIVE: CASE EVENT DATE: 20240417
